FAERS Safety Report 6407102-9 (Version None)
Quarter: 2009Q4

REPORT INFORMATION
  Report Type: 
  Country: None (occurrence: None)
  Receive Date: 20091020
  Receipt Date: 20091012
  Transmission Date: 20100525
  Serious: Yes (Hospitalization, Other)
  Sender: FDA-Public Use
  Company Number: FR-ROXANE LABORATORIES, INC.-2009-RO-01054RO

PATIENT
  Age: 61 Year
  Sex: Female

DRUGS (10)
  1. LITHIUM CARBONATE [Suspect]
     Route: 048
  2. LITHIUM CARBONATE [Suspect]
     Route: 048
  3. GLUCOSE SALINE SOLUTION [Concomitant]
     Indication: FLUID REPLACEMENT
     Route: 042
  4. GLUCOSE SALINE SOLUTION [Concomitant]
     Indication: DRUG TOXICITY
  5. SALINE [Concomitant]
     Indication: FLUID REPLACEMENT
     Route: 042
  6. SALINE [Concomitant]
     Indication: DRUG TOXICITY
  7. CYAMEMAZINE [Concomitant]
     Indication: SEDATION
  8. CYAMEMAZINE [Concomitant]
     Indication: DRUG TOXICITY
  9. OLANZAPINE [Concomitant]
     Indication: SEDATION
  10. OLANZAPINE [Concomitant]
     Indication: DRUG TOXICITY

REACTIONS (10)
  - ANXIETY [None]
  - CEREBELLAR SYNDROME [None]
  - DRUG TOXICITY [None]
  - DYSARTHRIA [None]
  - FLIGHT OF IDEAS [None]
  - HALLUCINATION, AUDITORY [None]
  - HYPERREFLEXIA [None]
  - LOGORRHOEA [None]
  - MANIA [None]
  - MIOSIS [None]
